FAERS Safety Report 13097080 (Version 1)
Quarter: 2017Q1

REPORT INFORMATION
  Report Type: Spontaneous
  Country: US (occurrence: US)
  Receive Date: 20170106
  Receipt Date: 20170106
  Transmission Date: 20170428
  Serious: Yes (Other)
  Sender: FDA-Public Use
  Company Number: None

PATIENT
  Sex: Male

DRUGS (1)
  1. RASUVO [Suspect]
     Active Substance: METHOTREXATE SODIUM
     Indication: RHEUMATOID ARTHRITIS
     Route: 058
     Dates: start: 20160901, end: 20161207

REACTIONS (11)
  - Insomnia [None]
  - Headache [None]
  - Dizziness [None]
  - Thirst [None]
  - Pain in extremity [None]
  - Vomiting [None]
  - Pain [None]
  - Depressed mood [None]
  - Tremor [None]
  - Feeling of body temperature change [None]
  - Anxiety [None]
